FAERS Safety Report 24881848 (Version 1)
Quarter: 2025Q1

REPORT INFORMATION
  Report Type: Spontaneous
  Country: US (occurrence: US)
  Receive Date: 20250124
  Receipt Date: 20250124
  Transmission Date: 20250409
  Serious: Yes (Other)
  Sender: ALEXION PHARMACEUTICALS
  Company Number: US-ASTRAZENECA-202501USA019472US

PATIENT

DRUGS (7)
  1. FASLODEX [Suspect]
     Active Substance: FULVESTRANT
     Route: 065
  2. FASLODEX [Suspect]
     Active Substance: FULVESTRANT
  3. IBRANCE [Suspect]
     Active Substance: PALBOCICLIB
     Route: 065
  4. NEXIUM [Concomitant]
     Active Substance: ESOMEPRAZOLE MAGNESIUM
     Dosage: 40 MILLIGRAM, QD
  5. METAMUCIL [Concomitant]
     Active Substance: PLANTAGO SEED
  6. CELEXA [Concomitant]
     Active Substance: CITALOPRAM HYDROBROMIDE
     Dosage: 40 MILLIGRAM, QD
  7. PROLIA [Concomitant]
     Active Substance: DENOSUMAB

REACTIONS (1)
  - Onychoclasis [Not Recovered/Not Resolved]
